FAERS Safety Report 13323489 (Version 3)
Quarter: 2017Q2

REPORT INFORMATION
  Report Type: Spontaneous
  Country: DE (occurrence: DE)
  Receive Date: 20170310
  Receipt Date: 20170614
  Transmission Date: 20170830
  Serious: Yes (Death, Life-Threatening, Hospitalization, Other)
  Sender: FDA-Public Use
  Company Number: DE-PFIZER INC-2017100427

PATIENT
  Age: 88 Year
  Sex: Female

DRUGS (12)
  1. MELPERON [Concomitant]
     Active Substance: MELPERONE
     Dosage: 2.5 ML, AS NEEDED
  2. METOPROLOL. [Concomitant]
     Active Substance: METOPROLOL
     Dosage: 47.5 MG, 1X/DAY
  3. UNACID [Suspect]
     Active Substance: AMPICILLIN SODIUM\SULBACTAM SODIUM
     Indication: PNEUMONIA
     Dosage: UNK
  4. PIPERACILLIN AND TAZOBACTAM [Suspect]
     Active Substance: PIPERACILLIN SODIUM\TAZOBACTAM SODIUM
     Indication: PNEUMONIA
     Dosage: ^4 G/0.5 G^; UNK
  5. LEVOFLOXACIN. [Concomitant]
     Active Substance: LEVOFLOXACIN
     Dosage: 0.5 DF, 2X/DAY
     Dates: start: 20170221
  6. ASPIRIN. [Concomitant]
     Active Substance: ASPIRIN
     Dosage: 100 MG, 1X/DAY
  7. SERTRALINE [Concomitant]
     Active Substance: SERTRALINE HYDROCHLORIDE
     Dosage: 100 MG, 1X/DAY
  8. MCP [Concomitant]
     Active Substance: METOCLOPRAMIDE HYDROCHLORIDE
     Dosage: 10 MG, AS NEEDED
  9. MELPERON [Concomitant]
     Active Substance: MELPERONE
     Dosage: 5 ML, 1X/DAY
  10. VALSARTAN. [Concomitant]
     Active Substance: VALSARTAN
     Dosage: 0.5 DF, 1X/DAY
  11. MACROGOL BEUTEL [Concomitant]
     Dosage: 1 DF, 1X/DAY
  12. OMEPRAZOL [Concomitant]
     Active Substance: OMEPRAZOLE
     Dosage: 40 MG, 1X/DAY

REACTIONS (1)
  - Hypernatraemia [Recovering/Resolving]

NARRATIVE: CASE EVENT DATE: 20170224
